FAERS Safety Report 7510202-3 (Version None)
Quarter: 2011Q2

REPORT INFORMATION
  Report Type: 
  Country: None (occurrence: None)
  Receive Date: 20110527
  Receipt Date: 20110516
  Transmission Date: 20111010
  Serious: Yes (Hospitalization, Other)
  Sender: FDA-Public Use
  Company Number: JP-CELGENEUS-087-21880-11011082

PATIENT
  Sex: Male

DRUGS (14)
  1. DEXAMETHASONE [Suspect]
     Dosage: 8 MILLIGRAM
     Route: 048
     Dates: start: 20101010, end: 20101013
  2. REVLIMID [Suspect]
     Indication: MULTIPLE MYELOMA
     Dosage: 5 MILLIGRAM
     Route: 048
     Dates: start: 20100817, end: 20100822
  3. LOXONIN [Concomitant]
     Indication: PROPHYLAXIS
     Route: 065
     Dates: start: 20101002
  4. RENAGEL [Concomitant]
     Indication: RENAL FAILURE
     Dosage: 750 MILLIGRAM
     Route: 048
     Dates: start: 20101002
  5. DEXAMETHASONE [Suspect]
     Indication: MULTIPLE MYELOMA
     Dosage: 8 MILLIGRAM
     Route: 048
     Dates: start: 20100817, end: 20100820
  6. REVLIMID [Suspect]
     Dosage: 5 MILLIGRAM
     Route: 048
     Dates: start: 20101121, end: 20101124
  7. OXYCONTIN [Concomitant]
     Dosage: 10 MILLIGRAM
     Route: 048
     Dates: start: 20100817
  8. REVLIMID [Suspect]
     Dosage: 5 MILLIGRAM
     Route: 048
     Dates: start: 20100825, end: 20100831
  9. DEXAMETHASONE [Suspect]
     Dosage: 8 MILLIGRAM
     Route: 048
     Dates: start: 20100825, end: 20100828
  10. DEXAMETHASONE [Suspect]
     Dosage: 8 MILLIGRAM
     Route: 048
     Dates: start: 20101002, end: 20101005
  11. PROCHLORPERAZINE [Concomitant]
     Dosage: 5 MILLIGRAM
     Route: 048
     Dates: start: 20100817
  12. PREDNISOLONE [Concomitant]
     Indication: PROPHYLAXIS
     Dosage: 5 MILLIGRAM
     Route: 048
     Dates: start: 20100817
  13. REVLIMID [Suspect]
     Dosage: 5 MILLIGRAM
     Route: 048
     Dates: start: 20101002, end: 20101018
  14. PROCHLORPERAZINE [Concomitant]
     Dosage: 15 MILLIGRAM
     Route: 048
     Dates: start: 20101002

REACTIONS (4)
  - BILE DUCT STONE [None]
  - WHITE BLOOD CELL COUNT DECREASED [None]
  - HAEMOGLOBIN DECREASED [None]
  - PLATELET COUNT DECREASED [None]
